FAERS Safety Report 5010006-X (Version None)
Quarter: 2006Q2

REPORT INFORMATION
  Report Type: 
  Country: None (occurrence: None)
  Receive Date: 20060404
  Receipt Date: 20051110
  Transmission Date: 20061013
  Serious: No
  Sender: FDA-Public Use
  Company Number: US200511000454

PATIENT
  Sex: Female

DRUGS (1)
  1. CYMBALTA [Suspect]
     Indication: DIABETIC NEUROPATHY
     Dosage: 30 MG, ORAL
     Route: 048
     Dates: start: 20051107

REACTIONS (5)
  - DIZZINESS [None]
  - FATIGUE [None]
  - FEELING ABNORMAL [None]
  - NAUSEA [None]
  - SOMNOLENCE [None]
